FAERS Safety Report 11687868 (Version 1)
Quarter: 2015Q4

REPORT INFORMATION
  Report Type: Spontaneous
  Country: US (occurrence: US)
  Receive Date: 20151030
  Receipt Date: 20151030
  Transmission Date: 20160304
  Serious: Yes (Other)
  Sender: FDA-Public Use
  Company Number: US-BAYER-2015-454113

PATIENT
  Sex: Male

DRUGS (1)
  1. CORICIDIN HBP COUGH AND COLD [Suspect]
     Active Substance: CHLORPHENIRAMINE MALEATE\DEXTROMETHORPHAN HYDROBROMIDE
     Indication: NASOPHARYNGITIS
     Dosage: 2 DF, Q4H
     Route: 048
     Dates: end: 20151024

REACTIONS (4)
  - Cough [Unknown]
  - Dyspnoea [Recovered/Resolved]
  - Product use issue [None]
  - Dysphonia [Unknown]

NARRATIVE: CASE EVENT DATE: 20151024
